FAERS Safety Report 12060287 (Version 1)
Quarter: 2016Q1

REPORT INFORMATION
  Report Type: Spontaneous
  Country: US (occurrence: US)
  Receive Date: 20160210
  Receipt Date: 20160210
  Transmission Date: 20160526
  Serious: No
  Sender: FDA-Public Use
  Company Number: US-VANDA PHARMACEUTICALS, INC-2015TASUS001006

PATIENT
  Age: 65 Year
  Sex: Male

DRUGS (2)
  1. HETLIOZ [Suspect]
     Active Substance: TASIMELTEON
     Indication: CIRCADIAN RHYTHM SLEEP DISORDER
     Dosage: 20 MG,EVERY DAY 1 HR BEFORE BEDTIME AT SAME TIME EVERY NIGHT WITHOUT FOOD
     Route: 048
     Dates: start: 201411
  2. HETLIOZ [Suspect]
     Active Substance: TASIMELTEON
     Dosage: 20 DAILY BEFORE BEDTIME
     Route: 048

REACTIONS (2)
  - Drug effect incomplete [Unknown]
  - Adverse drug reaction [Unknown]

NARRATIVE: CASE EVENT DATE: 20151025
